FAERS Safety Report 7350687-9 (Version None)
Quarter: 2011Q1

REPORT INFORMATION
  Report Type: 
  Country: None (occurrence: None)
  Receive Date: 20110222
  Receipt Date: 20101129
  Transmission Date: 20110831
  Serious: No
  Sender: FDA-Public Use
  Company Number: 021498

PATIENT
  Age: 43 Year
  Sex: Male

DRUGS (3)
  1. LACOSAMIDE [Suspect]
     Dosage: (50 MG BID) (100 MG BID)
     Dates: start: 20100921
  2. PHENERGAN HCL [Concomitant]
  3. PHENOBARBITAL [Suspect]

REACTIONS (3)
  - HEADACHE [None]
  - FEELING DRUNK [None]
  - MALAISE [None]
